FAERS Safety Report 24781315 (Version 1)
Quarter: 2024Q4

REPORT INFORMATION
  Report Type: Spontaneous
  Country: US (occurrence: US)
  Receive Date: 20241227
  Receipt Date: 20241227
  Transmission Date: 20250114
  Serious: No
  Sender: Haleon PLC
  Company Number: US-HALEON-2218882

PATIENT
  Age: 78 Year
  Sex: Male

DRUGS (2)
  1. FLUTICASONE [Suspect]
     Active Substance: FLUTICASONE
     Indication: Dysphonia
     Route: 045
  2. FLUTICASONE [Suspect]
     Active Substance: FLUTICASONE
     Indication: Dyspnoea

REACTIONS (1)
  - Treatment failure [Unknown]
